FAERS Safety Report 20168648 (Version 1)
Quarter: 2021Q4

REPORT INFORMATION
  Report Type: Spontaneous
  Country: US (occurrence: US)
  Receive Date: 20211210
  Receipt Date: 20211210
  Transmission Date: 20220303
  Serious: Yes (Hospitalization, Other)
  Sender: FDA-Public Use
  Company Number: US-IPCA LABORATORIES LIMITED-IPC-2021-US-002021

PATIENT

DRUGS (3)
  1. ALLOPURINOL [Interacting]
     Active Substance: ALLOPURINOL
     Indication: Nephrolithiasis
     Dosage: 100 MILLIGRAM, QD
     Route: 065
  2. AZATHIOPRINE [Interacting]
     Active Substance: AZATHIOPRINE
     Indication: Colitis ulcerative
     Dosage: 100 MILLIGRAM, QD
     Route: 065
  3. AZATHIOPRINE [Interacting]
     Active Substance: AZATHIOPRINE
     Indication: Colitis
     Dosage: 150 MILLIGRAM, QD
     Route: 065

REACTIONS (5)
  - Myelosuppression [Unknown]
  - Cytopenia [Unknown]
  - Dyspnoea exertional [Unknown]
  - Toxicity to various agents [Unknown]
  - Potentiating drug interaction [Unknown]
